FAERS Safety Report 8404109-7 (Version None)
Quarter: 2012Q2

REPORT INFORMATION
  Report Type: 
  Country: None (occurrence: None)
  Receive Date: 20120601
  Receipt Date: 20120529
  Transmission Date: 20120825
  Serious: Yes (Other)
  Sender: FDA-Public Use
  Company Number: PHHY2012GB045714

PATIENT
  Age: 81 Year
  Sex: Female

DRUGS (5)
  1. IBUPROFEN [Concomitant]
  2. METHOTREXATE [Suspect]
     Indication: RHEUMATOID ARTHRITIS
     Dosage: 25 MG, UNK
     Route: 048
     Dates: start: 20120316, end: 20120507
  3. ACETAMINOPHEN AND CODEINE PHOSPHATE [Concomitant]
  4. BENDROFLUMETHIAZIDE [Concomitant]
  5. FOLIC ACID [Concomitant]

REACTIONS (3)
  - DIZZINESS [None]
  - NOCTURIA [None]
  - ALOPECIA [None]
